FAERS Safety Report 23828440 (Version 1)
Quarter: 2024Q2

REPORT INFORMATION
  Report Type: Report from Study
  Country: DE (occurrence: DE)
  Receive Date: 20240508
  Receipt Date: 20240508
  Transmission Date: 20240716
  Serious: Yes (Other)
  Sender: FDA-Public Use
  Company Number: DE-Boehringer Ingelheim GmbH, Germany-2012-DE-01290DE

PATIENT
  Age: 24 Year
  Sex: Male
  Weight: 100 kg

DRUGS (8)
  1. DOXYCYCLINE HYCLATE [Suspect]
     Active Substance: DOXYCYCLINE HYCLATE
     Dosage: 1000 MG, 1X/DAY (1X10 TABLETS)
     Route: 048
  2. CODEINE [Suspect]
     Active Substance: CODEINE
     Dosage: 540 MG, 1X/DAY (1X18 TABLETS)
     Route: 048
  3. HERBALS [Suspect]
     Active Substance: HERBALS
     Dosage: UNK, 1X/DAY (1X20)
     Route: 048
  4. ROXITHROMYCIN [Suspect]
     Active Substance: ROXITHROMYCIN
     Dosage: 1500 MG, 1X/DAY (1X10 TABLETS)
     Route: 048
  5. ACETAMINOPHEN [Suspect]
     Active Substance: ACETAMINOPHEN
     Dosage: 5000 MG, 1X/DAY
     Route: 048
  6. IBUPROFEN [Suspect]
     Active Substance: IBUPROFEN
     Dosage: FOR CHILDREN IBUPROFEN SOLUTION 2%
     Route: 048
  7. ACETAMINOPHEN\ASCORBIC ACID\ASPIRIN [Suspect]
     Active Substance: ACETAMINOPHEN\ASCORBIC ACID\ASPIRIN
     Dosage: 1X10 TABLETS (300MG/200MG)
     Route: 048
  8. SODIUM FLUORIDE [Suspect]
     Active Substance: SODIUM FLUORIDE\SODIUM MONOFLUOROPHOSPHATE
     Dosage: UNK, 1X/DAY (1X60 TABLETS)
     Route: 048

REACTIONS (4)
  - Intentional overdose [Unknown]
  - Suicide attempt [Unknown]
  - Somnolence [Unknown]
  - Vomiting [Unknown]
